FAERS Safety Report 11628078 (Version 1)
Quarter: 2015Q4

REPORT INFORMATION
  Report Type: Spontaneous
  Country: US (occurrence: None)
  Receive Date: 20151009
  Receipt Date: 20151009
  Transmission Date: 20160304
  Serious: Yes (Hospitalization)
  Sender: FDA-Public Use
  Company Number: PT-ALSI-201500214

PATIENT
  Age: 66 Year
  Sex: Male

DRUGS (1)
  1. OXYGEN. [Suspect]
     Active Substance: OXYGEN
     Indication: CHRONIC OBSTRUCTIVE PULMONARY DISEASE
     Dosage: 3.51 ONCE A MINUTE RESPIRATORY
     Route: 055
     Dates: start: 20110722

REACTIONS (4)
  - Bronchospasm [None]
  - Thermal burn [None]
  - Wrong technique in product usage process [None]
  - Dyspnoea [None]

NARRATIVE: CASE EVENT DATE: 20150924
